FAERS Safety Report 21376248 (Version 1)
Quarter: 2022Q3

REPORT INFORMATION
  Report Type: Spontaneous
  Country: US (occurrence: US)
  Receive Date: 20220926
  Receipt Date: 20220926
  Transmission Date: 20221026
  Serious: No
  Sender: FDA-Public Use
  Company Number: US-TEVA-2022-US-2073661

PATIENT

DRUGS (2)
  1. CLONAZEPAM [Suspect]
     Active Substance: CLONAZEPAM
     Indication: Anxiety
     Dosage: .25 MILLIGRAM DAILY; 2 - 0.125 TABS PER DAY
     Route: 065
     Dates: end: 2019
  2. CLONAZEPAM [Suspect]
     Active Substance: CLONAZEPAM
     Indication: Balance disorder

REACTIONS (1)
  - Drug withdrawal syndrome [Unknown]
